FAERS Safety Report 5127764-6 (Version None)
Quarter: 2006Q4

REPORT INFORMATION
  Report Type: 
  Country: None (occurrence: None)
  Receive Date: 20061016
  Receipt Date: 20061010
  Transmission Date: 20070319
  Serious: Yes (Hospitalization)
  Sender: FDA-Public Use
  Company Number: ES-BRISTOL-MYERS SQUIBB COMPANY-13535794

PATIENT
  Age: 52 Year

DRUGS (2)
  1. TAXOL [Suspect]
     Route: 042
     Dates: start: 20050518, end: 20050522
  2. ADRIAMYCIN PFS [Suspect]
     Dates: start: 20050518, end: 20050522

REACTIONS (4)
  - DYSPHAGIA [None]
  - EAR PAIN [None]
  - GRANULOCYTOPENIA [None]
  - PYREXIA [None]
